FAERS Safety Report 7969219-7 (Version None)
Quarter: 2011Q4

REPORT INFORMATION
  Report Type: 
  Country: None (occurrence: None)
  Receive Date: 20111209
  Receipt Date: 20111130
  Transmission Date: 20120403
  Serious: Yes (Hospitalization, Other)
  Sender: FDA-Public Use
  Company Number: US-ASTRAZENECA-2010SE46495

PATIENT
  Sex: Male

DRUGS (12)
  1. NEXIUM [Suspect]
     Indication: GASTRITIS
     Route: 048
  2. LISINOPRIL [Suspect]
     Route: 048
  3. ASPIRIN [Concomitant]
  4. NEXIUM [Suspect]
     Indication: DUODENITIS
     Route: 048
  5. NITROGLYCERIN [Concomitant]
     Dosage: AS NEEDED
  6. NEXIUM [Suspect]
     Route: 048
  7. MULTI-VITAMINS [Concomitant]
     Dosage: BEFORE BREAKFAST ALONG WITH NEXIUM
  8. SIMVASTATIN [Concomitant]
  9. NEXIUM [Suspect]
     Route: 048
  10. RANITIDINE [Concomitant]
  11. SINGULAIR [Concomitant]
  12. COLACE [Concomitant]
     Dosage: TWICE DAILY

REACTIONS (20)
  - OROPHARYNGEAL DISCOMFORT [None]
  - DYSPHAGIA [None]
  - CHONDROPATHY [None]
  - CONSTIPATION [None]
  - MYALGIA [None]
  - MUSCULOSKELETAL CHEST PAIN [None]
  - COUGH [None]
  - RHINITIS [None]
  - INAPPROPRIATE SCHEDULE OF DRUG ADMINISTRATION [None]
  - BRONCHIAL SECRETION RETENTION [None]
  - EAR DISCOMFORT [None]
  - ADJUSTMENT DISORDER [None]
  - UPPER-AIRWAY COUGH SYNDROME [None]
  - CORONARY ARTERY DISEASE [None]
  - BRONCHITIS [None]
  - PNEUMONIA [None]
  - DYSPNOEA [None]
  - CORONARY ARTERY BYPASS [None]
  - REFLUX LARYNGITIS [None]
  - WHEEZING [None]
